FAERS Safety Report 9005906 (Version 2)
Quarter: 2013Q1

REPORT INFORMATION
  Report Type: Spontaneous
  Country: US (occurrence: US)
  Receive Date: 20130109
  Receipt Date: 20130125
  Transmission Date: 20140127
  Serious: No
  Sender: FDA-Public Use
  Company Number: US-ASTRAZENECA-2012SE92685

PATIENT
  Age: 88 Year
  Sex: Female
  Weight: 64 kg

DRUGS (4)
  1. SYMBICORT [Suspect]
     Indication: EMPHYSEMA
     Dosage: 160/4.5, TWO PUFFS TWICE DAILY
     Route: 055
     Dates: start: 2012
  2. ALBUTEROL [Concomitant]
  3. BIVODIN [Concomitant]
  4. PRO-AIR [Concomitant]

REACTIONS (4)
  - Blood cholesterol increased [Unknown]
  - Hearing impaired [Unknown]
  - Hypertension [Unknown]
  - Drug dose omission [Unknown]
